FAERS Safety Report 12842650 (Version 2)
Quarter: 2016Q4

REPORT INFORMATION
  Report Type: Report from Study
  Country: IE (occurrence: IE)
  Receive Date: 20161013
  Receipt Date: 20161223
  Transmission Date: 20170207
  Serious: Yes (Hospitalization, Other)
  Sender: FDA-Public Use
  Company Number: PHFR2016IE008052

PATIENT
  Age: 64 Year
  Sex: Male

DRUGS (5)
  1. SOLPADEIN [Concomitant]
     Indication: PAIN
     Dosage: 500 + 8 + 30 MG, PRN
     Route: 048
     Dates: start: 20150828
  2. AVAMYS [Concomitant]
     Active Substance: FLUTICASONE FUROATE
     Indication: SINUSITIS
     Dosage: UNK UNK, PRN
     Route: 045
     Dates: start: 20120827
  3. SALAMOL (SALBUTAMOL) [Concomitant]
     Indication: CHRONIC OBSTRUCTIVE PULMONARY DISEASE
     Dosage: 100 UG, QD
     Route: 055
     Dates: start: 20080728
  4. ULTIBRO BREEZHALER [Suspect]
     Active Substance: GLYCOPYRRONIUM\INDACATEROL
     Indication: PRODUCT USED FOR UNKNOWN INDICATION
     Route: 055
  5. SPIRIVA [Concomitant]
     Active Substance: TIOTROPIUM BROMIDE MONOHYDRATE
     Indication: CHRONIC OBSTRUCTIVE PULMONARY DISEASE
     Dosage: 18 UG, QD
     Route: 055
     Dates: start: 20080526, end: 20160907

REACTIONS (1)
  - Infective exacerbation of chronic obstructive airways disease [Recovering/Resolving]

NARRATIVE: CASE EVENT DATE: 20160629
